FAERS Safety Report 5761945-3 (Version None)
Quarter: 2008Q2

REPORT INFORMATION
  Report Type: 
  Country: None (occurrence: None)
  Receive Date: 20080603
  Receipt Date: 20080522
  Transmission Date: 20081010
  Serious: Yes (Other)
  Sender: FDA-Public Use
  Company Number: 2008AP000311

PATIENT
  Age: 23 Year
  Sex: Male

DRUGS (7)
  1. PAROXETINE HCL [Suspect]
     Indication: DEPRESSION
     Dosage: 60 MG; PO; QD;
     Route: 048
     Dates: end: 20040701
  2. PAROXETINE HCL [Suspect]
     Indication: DEPRESSION
     Dosage: 60 MG; PO; QD;
     Route: 048
     Dates: start: 20000331
  3. PAROXETINE HCL [Suspect]
     Indication: DEPRESSION
     Dosage: 60 MG; PO; QD;
     Route: 048
     Dates: start: 20030301
  4. CARBAMAZEPINE [Concomitant]
  5. DIAZEPAM [Concomitant]
  6. CLOMIPRAMINE HCL [Concomitant]
  7. COCAIN (COCAINE) [Concomitant]

REACTIONS (24)
  - AGGRESSION [None]
  - AGITATION [None]
  - AMNESIA [None]
  - ANOREXIA [None]
  - ANXIETY [None]
  - CONFUSIONAL STATE [None]
  - DEPRESSION [None]
  - DIARRHOEA [None]
  - DISTURBANCE IN ATTENTION [None]
  - DRUG WITHDRAWAL SYNDROME [None]
  - FATIGUE [None]
  - HYPERHIDROSIS [None]
  - INSOMNIA [None]
  - LETHARGY [None]
  - MALAISE [None]
  - NAUSEA [None]
  - NIGHTMARE [None]
  - NONSPECIFIC REACTION [None]
  - PANIC ATTACK [None]
  - PHOBIA [None]
  - SLEEP DISORDER [None]
  - SUICIDAL IDEATION [None]
  - TREMOR [None]
  - WEIGHT DECREASED [None]
